FAERS Safety Report 14818311 (Version 1)
Quarter: 2018Q2

REPORT INFORMATION
  Report Type: Spontaneous
  Country: US (occurrence: US)
  Receive Date: 20180427
  Receipt Date: 20180427
  Transmission Date: 20180711
  Serious: Yes (Other)
  Sender: FDA-Public Use
  Company Number: US-009507513-1804USA011511

PATIENT
  Age: 71 Year
  Sex: Female

DRUGS (1)
  1. EMEND [Suspect]
     Active Substance: APREPITANT
     Indication: PROPHYLAXIS OF NAUSEA AND VOMITING
     Dosage: 150 MG, UNK
     Route: 042

REACTIONS (2)
  - Cardiac arrest [Recovered/Resolved]
  - Hypersensitivity [Recovered/Resolved]
